FAERS Safety Report 4304475-8 (Version None)
Quarter: 2004Q1

REPORT INFORMATION
  Report Type: 
  Country: None (occurrence: None)
  Receive Date: 20040225
  Receipt Date: 20040220
  Transmission Date: 20041129
  Serious: Yes (Life-Threatening)
  Sender: FDA-Public Use
  Company Number: 7461

PATIENT
  Age: 34 Year
  Sex: Female

DRUGS (4)
  1. MORPHINE [Suspect]
     Indication: POST PROCEDURAL PAIN
     Dosage: 95 MG TOTAL, IV
     Route: 042
     Dates: start: 20031218, end: 20031219
  2. IBUPROFEN [Concomitant]
  3. CEFUROXIME [Concomitant]
  4. GENTAMICIN [Concomitant]

REACTIONS (4)
  - DYSPNOEA [None]
  - FACE OEDEMA [None]
  - RASH PRURITIC [None]
  - THROAT TIGHTNESS [None]
